FAERS Safety Report 18634932 (Version 1)
Quarter: 2020Q4

REPORT INFORMATION
  Report Type: Spontaneous
  Country: US (occurrence: US)
  Receive Date: 20201218
  Receipt Date: 20201218
  Transmission Date: 20210114
  Serious: Yes (Hospitalization)
  Sender: FDA-Public Use
  Company Number: None

PATIENT
  Age: 19 Year
  Sex: Male
  Weight: 94.5 kg

DRUGS (2)
  1. VINCRISTINE SULFATE. [Suspect]
     Active Substance: VINCRISTINE SULFATE
     Dates: end: 20201209
  2. METHOTREXATE. [Suspect]
     Active Substance: METHOTREXATE
     Indication: DRUG THERAPY
     Dates: end: 20201209

REACTIONS (17)
  - Toxicity to various agents [None]
  - Urine leukocyte esterase positive [None]
  - Epistaxis [None]
  - Abdominal pain [None]
  - Vomiting [None]
  - Transaminases increased [None]
  - Abdominal tenderness [None]
  - Nausea [None]
  - Drug ineffective [None]
  - Blood urine present [None]
  - Stomatitis [None]
  - Decreased appetite [None]
  - Pyrexia [None]
  - Chills [None]
  - Blood creatinine increased [None]
  - Protein urine present [None]
  - Oropharyngeal pain [None]

NARRATIVE: CASE EVENT DATE: 20201211
